FAERS Safety Report 5117073-3 (Version None)
Quarter: 2006Q3

REPORT INFORMATION
  Report Type: 
  Country: None (occurrence: None)
  Receive Date: 20060925
  Receipt Date: 20060912
  Transmission Date: 20061208
  Serious: Yes (Hospitalization)
  Sender: FDA-Public Use
  Company Number: 2006110644

PATIENT
  Age: 57 Year
  Sex: Male
  Weight: 79 kg

DRUGS (4)
  1. SUTENT [Suspect]
     Indication: RENAL CELL CARCINOMA STAGE UNSPECIFIED
     Dosage: 50 MG (50 MG, 1 IN 1 D) ORAL
     Route: 048
     Dates: start: 20060104
  2. ASPIRIN [Concomitant]
  3. PREDNISOLONE [Concomitant]
  4. OMEPRAZOLE [Concomitant]

REACTIONS (1)
  - PLEURAL EFFUSION [None]
